FAERS Safety Report 24440852 (Version 2)
Quarter: 2024Q4

REPORT INFORMATION
  Report Type: Report from Study
  Country: BR (occurrence: BR)
  Receive Date: 20241016
  Receipt Date: 20241017
  Transmission Date: 20250115
  Serious: No
  Sender: ROCHE
  Company Number: BR-ROCHE-3450482

PATIENT
  Age: 11 Year
  Sex: Male
  Weight: 90.6 kg

DRUGS (3)
  1. HEMLIBRA [Suspect]
     Active Substance: EMICIZUMAB-KXWH
     Indication: Factor VIII deficiency
     Route: 058
     Dates: start: 20211019
  2. HEMLIBRA [Suspect]
     Active Substance: EMICIZUMAB-KXWH
     Dosage: 23/AUG/2022, 30/AUG/2022, 13/SEP/2022, 20/SEP/2022, 27/SEP/2022
     Route: 058
     Dates: start: 20220816
  3. HEMLIBRA [Suspect]
     Active Substance: EMICIZUMAB-KXWH
     Dosage: 04/OCT/2022, 11/OCT/2022, 18/OCT/2022, 25/OCT/2022, 01/NOV/2022
     Route: 058
     Dates: start: 20220906

REACTIONS (2)
  - Fall [Unknown]
  - Limb injury [Recovered/Resolved]

NARRATIVE: CASE EVENT DATE: 20221101
